FAERS Safety Report 6029930-4 (Version None)
Quarter: 2008Q4

REPORT INFORMATION
  Report Type: 
  Country: None (occurrence: None)
  Receive Date: 20081222
  Receipt Date: 20080924
  Transmission Date: 20090506
  Serious: No
  Sender: FDA-Public Use
  Company Number: US-WYE-H06142208

PATIENT
  Age: 58 Year
  Sex: Female
  Weight: 70.37 kg

DRUGS (3)
  1. PRISTIQ [Suspect]
     Indication: DEPRESSION
     Dosage: 50 MG 1X PER 1 DAY
     Dates: start: 20080923
  2. METOPROLOL TARTRATE [Concomitant]
  3. BETAMETHASONE VALERATE [Concomitant]

REACTIONS (1)
  - MIDDLE INSOMNIA [None]
